FAERS Safety Report 4475241-8 (Version None)
Quarter: 2004Q4

REPORT INFORMATION
  Report Type: 
  Country: None (occurrence: None)
  Receive Date: 20041012
  Receipt Date: 20040928
  Transmission Date: 20050328
  Serious: Yes (Hospitalization, Disabling, Other)
  Sender: FDA-Public Use
  Company Number: 001-0945-M0000697

PATIENT
  Age: 44 Year
  Sex: Male

DRUGS (8)
  1. NEURONTIN [Suspect]
     Indication: BACK PAIN
     Dosage: 900 MG (1D), ORAL
     Route: 048
     Dates: start: 19970506, end: 19971101
  2. VALPROATE SODIUM [Suspect]
     Indication: CONVULSION
  3. BUSPIRONE HCL [Concomitant]
  4. FLUOXETINE HYDROCHLORIDE [Concomitant]
  5. OMEPRAZOLE [Concomitant]
  6. CAPSAICIN (CAPSAICIN) [Concomitant]
  7. CELECOXIB (CELECOXIB) [Concomitant]
  8. LANSOPRAZOLE [Concomitant]

REACTIONS (113)
  - ABDOMINAL PAIN UPPER [None]
  - ABDOMINAL TENDERNESS [None]
  - ACROCHORDON [None]
  - ACTINIC KERATOSIS [None]
  - ACUTE SINUSITIS [None]
  - AGE INDETERMINATE MYOCARDIAL INFARCTION [None]
  - ALBUMIN GLOBULIN RATIO DECREASED [None]
  - ALCOHOLISM [None]
  - ANGINA UNSTABLE [None]
  - ANXIETY [None]
  - ATAXIA [None]
  - BACK INJURY [None]
  - BIPOLAR DISORDER [None]
  - BLADDER DISORDER [None]
  - BLOOD ALBUMIN DECREASED [None]
  - BLOOD ALKALINE PHOSPHATASE INCREASED [None]
  - BLOOD CALCIUM DECREASED [None]
  - BLOOD TRIGLYCERIDES INCREASED [None]
  - BLOOD UREA NITROGEN/CREATININE RATIO INCREASED [None]
  - BONE CYST [None]
  - BRAIN NEOPLASM [None]
  - BRONCHITIS ACUTE [None]
  - CARDIAC ARREST [None]
  - CAROTID ARTERY DISEASE [None]
  - CEREBRAL PERFUSION PRESSURE DECREASED [None]
  - CHEST WALL MASS [None]
  - CHOLECYSTITIS [None]
  - CHOLELITHIASIS [None]
  - COGNITIVE DISORDER [None]
  - COMPUTERISED TOMOGRAM ABNORMAL [None]
  - CONDYLOMA ACUMINATUM [None]
  - CONVERSION DISORDER [None]
  - CONVULSION [None]
  - COORDINATION ABNORMAL [None]
  - CYST [None]
  - DEAFNESS UNILATERAL [None]
  - DEPRESSION [None]
  - DIABETES MELLITUS [None]
  - DIFFICULTY IN WALKING [None]
  - DIPLOPIA [None]
  - DISSOCIATIVE DISORDER [None]
  - DISTURBANCE IN ATTENTION [None]
  - DYSPHEMIA [None]
  - DYSSTASIA [None]
  - EAR DISCOMFORT [None]
  - ELECTROCARDIOGRAM P WAVE ABNORMAL [None]
  - EMOTIONAL DISORDER [None]
  - EPENDYMOMA [None]
  - EXOSTOSIS [None]
  - EXPOSURE TO TOXIC AGENT [None]
  - FALL [None]
  - FIBROMYALGIA [None]
  - FOLLICULITIS [None]
  - GAIT DISTURBANCE [None]
  - GALLBLADDER DISORDER [None]
  - GAMMA-GLUTAMYLTRANSFERASE INCREASED [None]
  - GASTRITIS [None]
  - GASTROINTESTINAL DISORDER [None]
  - GASTROOESOPHAGEAL REFLUX DISEASE [None]
  - GLIOMA [None]
  - GYNAECOMASTIA [None]
  - HAEMATOCRIT DECREASED [None]
  - HALLUCINATION [None]
  - HEADACHE [None]
  - HEARING IMPAIRED [None]
  - HEPATIC ENZYME INCREASED [None]
  - HEPATIC STEATOSIS [None]
  - HIGH DENSITY LIPOPROTEIN DECREASED [None]
  - HYPERAEMIA [None]
  - HYPERHIDROSIS [None]
  - IMPAIRED DRIVING ABILITY [None]
  - INSOMNIA [None]
  - INTERVERTEBRAL DISC DISPLACEMENT [None]
  - INTERVERTEBRAL DISC PROTRUSION [None]
  - JOINT INJURY [None]
  - LOWER GASTROINTESTINAL HAEMORRHAGE [None]
  - LUMBAR SPINAL STENOSIS [None]
  - MARITAL PROBLEM [None]
  - MEMORY IMPAIRMENT [None]
  - MENISCUS LESION [None]
  - MONOCYTE COUNT DECREASED [None]
  - MUSCULOSKELETAL STIFFNESS [None]
  - NERVOUS SYSTEM DISORDER [None]
  - NEURODEGENERATIVE DISORDER [None]
  - OEDEMA PERIPHERAL [None]
  - OSTEOARTHRITIS [None]
  - PAIN [None]
  - PARAESTHESIA [None]
  - PARANEOPLASTIC SYNDROME [None]
  - PATELLOFEMORAL PAIN SYNDROME [None]
  - PEPTIC ULCER [None]
  - PETIT MAL EPILEPSY [None]
  - PHARYNGOLARYNGEAL PAIN [None]
  - PIGMENTED NAEVUS [None]
  - PLANTAR FASCIITIS [None]
  - POST PROCEDURAL COMPLICATION [None]
  - READING DISORDER [None]
  - ROAD TRAFFIC ACCIDENT [None]
  - SCAR [None]
  - SEBORRHOEIC KERATOSIS [None]
  - SICK SINUS SYNDROME [None]
  - SINGLE PHOTON EMISSION COMPUTERISED TOMOGRAM ABNORMAL [None]
  - SPEECH DISORDER [None]
  - STEREOTYPY [None]
  - STRABISMUS [None]
  - SUICIDAL IDEATION [None]
  - SYNOVITIS [None]
  - TENSION [None]
  - TINNITUS [None]
  - TOE DEFORMITY [None]
  - VISION BLURRED [None]
  - VISUAL DISTURBANCE [None]
  - WEIGHT DECREASED [None]
